FAERS Safety Report 16292826 (Version 4)
Quarter: 2020Q2

REPORT INFORMATION
  Report Type: Spontaneous
  Country: IN (occurrence: IN)
  Receive Date: 20190509
  Receipt Date: 20200624
  Transmission Date: 20200713
  Serious: Yes (Life-Threatening, Hospitalization, Other)
  Sender: FDA-Public Use
  Company Number: IN-PFIZER INC-2019197085

PATIENT
  Age: 36 Year
  Sex: Female
  Weight: 36 kg

DRUGS (10)
  1. DIGOXIN. [Suspect]
     Active Substance: DIGOXIN
     Dosage: 0.25 MG OD
  2. ACENOCOUMAROL [Suspect]
     Active Substance: ACENOCOUMAROL
     Dosage: UNK
  3. BICARBONATE SODIUM [Concomitant]
     Active Substance: SODIUM BICARBONATE
     Dosage: UNK
  4. RAMIPRIL. [Suspect]
     Active Substance: RAMIPRIL
     Dosage: 5 MG, QD, TABLET
  5. FUROSEMIDE. [Suspect]
     Active Substance: FUROSEMIDE
     Dosage: 40 MG ONCE DAILY (OD)
  6. FUROSEMIDE/SPIRONOLACTONE [Suspect]
     Active Substance: FUROSEMIDE\SPIRONOLACTONE
     Dosage: 40/25 MG, BD
  7. ALDACTONE [Suspect]
     Active Substance: SPIRONOLACTONE
     Indication: FLUID OVERLOAD
     Dosage: 100 MG OD
  8. ASPIRIN. [Suspect]
     Active Substance: ASPIRIN
     Dosage: 150 MG OD
  9. AMIODARONE [Concomitant]
     Active Substance: AMIODARONE
     Dosage: 200 MG OD
  10. METOPROLOL. [Concomitant]
     Active Substance: METOPROLOL
     Dosage: 25 MG TWICE A DAY

REACTIONS (12)
  - Hyperkalaemia [Recovering/Resolving]
  - Diarrhoea [Unknown]
  - Vomiting [Unknown]
  - Muscular weakness [Unknown]
  - Hypocalcaemia [Unknown]
  - Dehydration [Unknown]
  - Cold sweat [Unknown]
  - Prescribed overdose [Unknown]
  - Peripheral coldness [Unknown]
  - Heart rate decreased [Unknown]
  - Blood pressure decreased [Unknown]
  - Hyponatraemia [Unknown]
